FAERS Safety Report 26064142 (Version 1)
Quarter: 2025Q4

REPORT INFORMATION
  Report Type: Spontaneous
  Country: US (occurrence: US)
  Receive Date: 20251119
  Receipt Date: 20251119
  Transmission Date: 20260117
  Serious: No
  Sender: BIOCRYST PHARMACEUTICALS
  Company Number: US-BIOCRYST PHARMACEUTICALS, INC.-2025BCR01373

PATIENT

DRUGS (1)
  1. BEROTRALSTAT [Suspect]
     Active Substance: BEROTRALSTAT
     Indication: Hereditary angioedema
     Dosage: 150 MG

REACTIONS (1)
  - Swelling [Unknown]
